FAERS Safety Report 4689349-5 (Version None)
Quarter: 2005Q2

REPORT INFORMATION
  Report Type: 
  Country: None (occurrence: None)
  Receive Date: 20050608
  Receipt Date: 20050224
  Transmission Date: 20051028
  Serious: No
  Sender: FDA-Public Use
  Company Number: 2005-BP-02993BP

PATIENT
  Sex: Male

DRUGS (10)
  1. SPIRIVA [Suspect]
     Indication: BRONCHITIS
     Dosage: 18 MCG (18 MCG), IH
     Route: 055
     Dates: start: 20040601
  2. SPIRIVA [Suspect]
     Indication: CHRONIC OBSTRUCTIVE PULMONARY DISEASE
     Dosage: 18 MCG (18 MCG), IH
     Route: 055
     Dates: start: 20040601
  3. SPIRIVA [Suspect]
     Indication: EMPHYSEMA
     Dosage: 18 MCG (18 MCG), IH
     Route: 055
     Dates: start: 20040601
  4. ALBUTEROL [Concomitant]
  5. ADVAIR DISKUS 100/50 [Concomitant]
  6. CARVEDILOL [Concomitant]
  7. SIMVASTATIN [Concomitant]
  8. LISINOPRIL [Concomitant]
  9. TERAZOSIN (TERAZOSIN) [Concomitant]
  10. SINGULAIR (MONTELUKAST) [Concomitant]

REACTIONS (1)
  - DRUG INEFFECTIVE [None]
